FAERS Safety Report 11820464 (Version 1)
Quarter: 2015Q4

REPORT INFORMATION
  Report Type: Spontaneous
  Country: US (occurrence: US)
  Receive Date: 20151210
  Receipt Date: 20151210
  Transmission Date: 20160305
  Serious: No
  Sender: FDA-Public Use
  Company Number: US-JNJFOC-20150700747

PATIENT
  Sex: Male

DRUGS (16)
  1. MULTIVITAMINS [Concomitant]
     Active Substance: VITAMINS
  2. VITAMIN C [Concomitant]
     Active Substance: ASCORBIC ACID
  3. VITAMIN D [Concomitant]
     Active Substance: CHOLECALCIFEROL
  4. ACYCLOVIR. [Concomitant]
     Active Substance: ACYCLOVIR
  5. FISH OIL [Concomitant]
     Active Substance: FISH OIL
  6. GLUCOSAMINE / CHONDROITIN [Concomitant]
  7. VITAMIN B12 [Concomitant]
     Active Substance: CYANOCOBALAMIN
  8. POTASSIUM [Concomitant]
     Active Substance: POTASSIUM
  9. VITAMIN A [Concomitant]
     Active Substance: VITAMIN A
  10. IMBRUVICA [Suspect]
     Active Substance: IBRUTINIB
     Indication: CHRONIC LYMPHOCYTIC LEUKAEMIA
     Route: 048
     Dates: start: 20150530
  11. ATORVASTATIN [Concomitant]
     Active Substance: ATORVASTATIN
  12. OMEGA 3 [Concomitant]
     Active Substance: OMEGA-3 FATTY ACIDS
  13. VITAMIN B COMPLEX [Concomitant]
     Active Substance: CYANOCOBALAMIN\DEXPANTHENOL\NIACINAMIDE\PYRIDOXINE HYDROCHLORIDE\RIBOFLAVIN 5^-PHOSPHATE SODIUM\THIAMINE HYDROCHLORIDE\VITAMIN B COMPLEX
  14. ADVIL PM [Concomitant]
     Active Substance: DIPHENHYDRAMINE CITRATE\IBUPROFEN
  15. ALEVE [Concomitant]
     Active Substance: NAPROXEN SODIUM
  16. CALCIUM WITH VITAMIN  D [Concomitant]
     Active Substance: CALCIUM\VITAMIN D

REACTIONS (2)
  - Fatigue [Unknown]
  - Flatulence [Unknown]

NARRATIVE: CASE EVENT DATE: 2015
